FAERS Safety Report 9216577 (Version 2)
Quarter: 2013Q2

REPORT INFORMATION
  Report Type: Spontaneous
  Country: US (occurrence: None)
  Receive Date: 20130403
  Receipt Date: 20130419
  Transmission Date: 20140414
  Serious: Yes (Other)
  Sender: FDA-Public Use
  Company Number: ZYD-13-AE-064

PATIENT
  Sex: Female

DRUGS (2)
  1. LAMOTRIGINE [Suspect]
     Indication: CONVULSION
     Route: 048
     Dates: start: 201302, end: 201303
  2. LAMOTRIGINE [Suspect]
     Indication: CONVULSION
     Dosage: 150MG, QD-BID, ORAL
     Route: 048
     Dates: start: 201302, end: 201303

REACTIONS (8)
  - Pregnancy [None]
  - Maternal exposure during pregnancy [None]
  - Product quality issue [None]
  - Drug ineffective [None]
  - Abortion spontaneous [None]
  - Convulsion [None]
  - Peripartum haemorrhage [None]
  - Infertility female [None]
